FAERS Safety Report 6817581-0 (Version None)
Quarter: 2010Q3

REPORT INFORMATION
  Report Type: 
  Country: None (occurrence: None)
  Receive Date: 20100706
  Receipt Date: 20100622
  Transmission Date: 20110219
  Serious: Yes (Hospitalization, Other)
  Sender: FDA-Public Use
  Company Number: PHHY2010US37852

PATIENT
  Sex: Female

DRUGS (17)
  1. RECLAST [Suspect]
     Dosage: UNK
     Dates: start: 20091001
  2. DEPAKOTE [Concomitant]
  3. PEGANONE [Concomitant]
  4. MYSOLINE [Concomitant]
  5. ASPIRIN [Concomitant]
     Dosage: UNK
  6. CITRACAL [Concomitant]
     Dosage: UNK
  7. MULTI-VITAMINS [Concomitant]
  8. FISH OIL [Concomitant]
     Dosage: UNK
  9. FLUPHENAZINE [Concomitant]
  10. VITAMIN D3 [Concomitant]
  11. VITAMIN C [Concomitant]
  12. VITAMIN B [Concomitant]
  13. GLUCOSAMINE [Concomitant]
     Dosage: UNK
  14. GELATIN [Concomitant]
  15. NEXIUM [Concomitant]
  16. GENTEAL [Concomitant]
  17. VISINE EYE DROPS [Concomitant]

REACTIONS (17)
  - ANXIETY [None]
  - BLOOD POTASSIUM INCREASED [None]
  - BLOOD SODIUM DECREASED [None]
  - COUGH [None]
  - EYE PAIN [None]
  - FEELING ABNORMAL [None]
  - HEART RATE INCREASED [None]
  - INFLUENZA LIKE ILLNESS [None]
  - MYALGIA [None]
  - NEUROPATHY PERIPHERAL [None]
  - PAIN [None]
  - PAIN IN EXTREMITY [None]
  - PAIN IN JAW [None]
  - SKIN ATROPHY [None]
  - TENDERNESS [None]
  - TOOTHACHE [None]
  - VISION BLURRED [None]
